FAERS Safety Report 8362111-8 (Version None)
Quarter: 2012Q2

REPORT INFORMATION
  Report Type: 
  Country: None (occurrence: None)
  Receive Date: 20120515
  Receipt Date: 20120503
  Transmission Date: 20120825
  Serious: Yes (Other)
  Sender: FDA-Public Use
  Company Number: FR-TEVA-336581ISR

PATIENT
  Age: 58 Year
  Sex: Male

DRUGS (1)
  1. QVAR AUTOHALER [Suspect]
     Route: 055

REACTIONS (4)
  - REACTION TO DRUG EXCIPIENTS [None]
  - DRY MOUTH [None]
  - TONGUE OEDEMA [None]
  - HYPERSENSITIVITY [None]
